FAERS Safety Report 15648129 (Version 1)
Quarter: 2018Q4

REPORT INFORMATION
  Report Type: Report from Study
  Country: None (occurrence: RO)
  Receive Date: 20181122
  Receipt Date: 20181122
  Transmission Date: 20190205
  Serious: Yes (Other)
  Sender: FDA-Public Use
  Company Number: RO-ABBVIE-18S-135-2562327-00

PATIENT
  Sex: Female

DRUGS (6)
  1. EXVIERA [Suspect]
     Active Substance: DASABUVIR
     Indication: HEPATIC CIRRHOSIS
  2. VIEKIRAX [Suspect]
     Active Substance: OMBITASVIR\PARITAPREVIR\RITONAVIR
     Indication: HEPATITIS C
     Route: 048
     Dates: start: 20180607, end: 20180828
  3. EXVIERA [Suspect]
     Active Substance: DASABUVIR
     Indication: HEPATITIS C
     Route: 048
     Dates: start: 20180607, end: 20180828
  4. LIV 52 [Concomitant]
     Indication: LIVER DISORDER
     Route: 048
  5. VIEKIRAX [Suspect]
     Active Substance: OMBITASVIR\PARITAPREVIR\RITONAVIR
     Indication: HEPATIC CIRRHOSIS
  6. LANTUS [Concomitant]
     Active Substance: INSULIN GLARGINE
     Indication: DIABETES MELLITUS
     Dosage: 18UI-20UI

REACTIONS (6)
  - Mobility decreased [Not Recovered/Not Resolved]
  - Blood pressure decreased [Not Recovered/Not Resolved]
  - Dizziness [Not Recovered/Not Resolved]
  - Intestinal obstruction [Recovered/Resolved]
  - Muscle atrophy [Not Recovered/Not Resolved]
  - Ascites [Not Recovered/Not Resolved]

NARRATIVE: CASE EVENT DATE: 2018
